FAERS Safety Report 5903289-2 (Version None)
Quarter: 2008Q3

REPORT INFORMATION
  Report Type: 
  Country: None (occurrence: None)
  Receive Date: 20080930
  Receipt Date: 20080924
  Transmission Date: 20090109
  Serious: Yes (Other)
  Sender: FDA-Public Use
  Company Number: A0749038A

PATIENT
  Age: 58 Year
  Sex: Female

DRUGS (3)
  1. REQUIP [Suspect]
     Indication: PARKINSON'S DISEASE
     Dosage: 4MG THREE TIMES PER DAY
     Route: 048
     Dates: start: 20061001
  2. ZOLOFT [Concomitant]
  3. AZILECT [Concomitant]

REACTIONS (3)
  - MACULOPATHY [None]
  - SOMNOLENCE [None]
  - VITREOUS DETACHMENT [None]
